FAERS Safety Report 5854932-8 (Version None)
Quarter: 2008Q3

REPORT INFORMATION
  Report Type: 
  Country: None (occurrence: None)
  Receive Date: 20080822
  Receipt Date: 20080324
  Transmission Date: 20090109
  Serious: No
  Sender: FDA-Public Use
  Company Number: US-ABBOTT-08P-163-0444072-00

PATIENT
  Sex: Female
  Weight: 55.842 kg

DRUGS (2)
  1. SYNTHROID [Suspect]
     Indication: GOITRE
     Route: 048
     Dates: start: 20071223
  2. SYNTHROID [Suspect]
     Route: 048
     Dates: start: 20071201, end: 20071222

REACTIONS (1)
  - METRORRHAGIA [None]
